FAERS Safety Report 17462921 (Version 3)
Quarter: 2020Q1

REPORT INFORMATION
  Report Type: Spontaneous
  Country: ES (occurrence: ES)
  Receive Date: 20200226
  Receipt Date: 20200319
  Transmission Date: 20200409
  Serious: Yes (Life-Threatening, Hospitalization, Other)
  Sender: FDA-Public Use
  Company Number: ES-AUROBINDO-AUR-APL-2020-007042

PATIENT
  Age: 53 Year
  Sex: Female
  Weight: 67 kg

DRUGS (22)
  1. COBICISTAT [Suspect]
     Active Substance: COBICISTAT
     Indication: ANTIRETROVIRAL THERAPY
     Dosage: 150 MILLIGRAM, ONCE A DAY
     Route: 065
     Dates: start: 201804
  2. LOPINAVIR;RITONAVIR [Suspect]
     Active Substance: LOPINAVIR\RITONAVIR
     Indication: HEPATITIS C
  3. LOPINAVIR [Concomitant]
     Active Substance: LOPINAVIR
     Indication: ANTIRETROVIRAL THERAPY
     Dosage: 400 MILLIGRAM, TWO TIMES A DAY
     Route: 065
     Dates: start: 201801
  4. COBICISTAT;DARUNAVIR [Interacting]
     Active Substance: COBICISTAT\DARUNAVIR ETHANOLATE
     Indication: HEPATITIS C
  5. COBICISTAT;DARUNAVIR [Interacting]
     Active Substance: COBICISTAT\DARUNAVIR ETHANOLATE
     Indication: ANTIRETROVIRAL THERAPY
  6. LOPINAVIR;RITONAVIR [Suspect]
     Active Substance: LOPINAVIR\RITONAVIR
     Indication: HIV INFECTION
     Dosage: UNK, TWO TIMES A DAY (400/100 MG)
     Route: 048
     Dates: start: 201801
  7. BOSENTAN FILM COATED TABLETS [Suspect]
     Active Substance: BOSENTAN
     Indication: PULMONARY ARTERIAL HYPERTENSION
     Dosage: 125 MILLIGRAM, TWO TIMES A DAY
     Route: 065
     Dates: start: 201801, end: 2018
  8. TADALAFIL. [Suspect]
     Active Substance: TADALAFIL
     Indication: PULMONARY ARTERIAL HYPERTENSION
     Dosage: 20 MILLIGRAM, ONCE A DAY
     Route: 065
     Dates: start: 201801
  9. RALTEGRAVIR. [Suspect]
     Active Substance: RALTEGRAVIR
     Indication: HIV INFECTION
     Dosage: 400 MILLIGRAM, TWO TIMES A DAY
     Route: 065
     Dates: start: 201801
  10. RALTEGRAVIR. [Suspect]
     Active Substance: RALTEGRAVIR
     Indication: ANTIRETROVIRAL THERAPY
  11. DARUNAVIR [Suspect]
     Active Substance: DARUNAVIR
     Indication: ANTIRETROVIRAL THERAPY
     Dosage: 800 MILLIGRAM, ONCE A DAY
     Route: 065
     Dates: start: 201804
  12. RALTEGRAVIR. [Suspect]
     Active Substance: RALTEGRAVIR
     Indication: HEPATITIS C
  13. RILPIVIRINE [Concomitant]
     Active Substance: RILPIVIRINE
     Indication: HIV INFECTION
  14. GLECAPREVIR;PIBRENTASVIR [Concomitant]
     Active Substance: GLECAPREVIR\PIBRENTASVIR
     Indication: HEPATITIS C
     Dosage: UNK
     Route: 065
     Dates: start: 2018
  15. GLECAPREVIR [Concomitant]
     Active Substance: GLECAPREVIR
     Indication: HEPATITIS C
     Dosage: UNK
     Route: 065
     Dates: start: 201801
  16. TRACLEER [Interacting]
     Active Substance: BOSENTAN
     Indication: PULMONARY ARTERIAL HYPERTENSION
     Dosage: 125 MILLIGRAM, TWO TIMES A DAY
     Route: 048
     Dates: start: 20180409, end: 20181008
  17. COBICISTAT;DARUNAVIR [Interacting]
     Active Substance: COBICISTAT\DARUNAVIR ETHANOLATE
     Indication: HIV INFECTION
     Dosage: UNK, ONCE A DAY (800/150 MG)
     Route: 065
     Dates: start: 201804, end: 201809
  18. RILPIVIRINE [Concomitant]
     Active Substance: RILPIVIRINE
     Indication: ANTIRETROVIRAL THERAPY
     Dosage: 25 MILLIGRAM, ONCE A DAY
     Route: 065
     Dates: start: 201801
  19. BOSENTAN FILM COATED TABLETS [Suspect]
     Active Substance: BOSENTAN
     Dosage: 125 MILLIGRAM, TWO TIMES A DAY (REINTRODUCED DOSE)
     Route: 065
     Dates: start: 201804, end: 201809
  20. TADALAFIL. [Suspect]
     Active Substance: TADALAFIL
     Dosage: 20 MILLIGRAM, ONCE A DAY (REINTRODUCED DOSE)
     Route: 065
     Dates: start: 201804
  21. RITONAVIR. [Concomitant]
     Active Substance: RITONAVIR
     Indication: ANTIRETROVIRAL THERAPY
     Dosage: 100 MILLIGRAM, TWO TIMES A DAY
     Route: 065
     Dates: start: 201801
  22. TRACLEER [Interacting]
     Active Substance: BOSENTAN
     Dosage: 62.5 MILLIGRAM, TWO TIMES A DAY
     Route: 048
     Dates: start: 20180409, end: 20181019

REACTIONS (9)
  - Drug resistance [Unknown]
  - Respiratory failure [Recovering/Resolving]
  - Virologic failure [Recovered/Resolved]
  - Drug interaction [Recovered/Resolved]
  - Cardiac failure [Recovering/Resolving]
  - Gene mutation [Recovered/Resolved]
  - Cardiac failure congestive [Recovered/Resolved]
  - Toxicity to various agents [Recovering/Resolving]
  - Fluid retention [Recovered/Resolved]

NARRATIVE: CASE EVENT DATE: 2018
